FAERS Safety Report 19940030 (Version 1)
Quarter: 2021Q4

REPORT INFORMATION
  Report Type: Spontaneous
  Country: SE (occurrence: SE)
  Receive Date: 20211012
  Receipt Date: 20211012
  Transmission Date: 20220303
  Serious: Yes (Disabling)
  Sender: FDA-Public Use
  Company Number: None

PATIENT
  Age: 58 Year
  Sex: Female

DRUGS (5)
  1. OXAZEPAM [Interacting]
     Active Substance: OXAZEPAM
     Indication: Anxiety
     Dosage: 15 MG
     Route: 065
     Dates: start: 2001
  2. COMIRNATY [Interacting]
     Active Substance: TOZINAMERAN
     Dosage: DOS 2
     Route: 065
     Dates: start: 20210618, end: 20210618
  3. COMIRNATY [Interacting]
     Active Substance: TOZINAMERAN
     Dosage: DOS 1
     Route: 065
     Dates: start: 20210507, end: 20210507
  4. PROPIOMAZINE [Interacting]
     Active Substance: PROPIOMAZINE
     Indication: Insomnia
     Dosage: 25 MG
     Route: 065
     Dates: start: 2001
  5. IMOVANE [Interacting]
     Active Substance: ZOPICLONE
     Indication: Insomnia
     Dosage: 15 MG
     Route: 065
     Dates: start: 2001

REACTIONS (2)
  - Somnolence [Not Recovered/Not Resolved]
  - Potentiating drug interaction [Not Recovered/Not Resolved]

NARRATIVE: CASE EVENT DATE: 20210704
